FAERS Safety Report 5692052-6 (Version None)
Quarter: 2008Q2

REPORT INFORMATION
  Report Type: 
  Country: None (occurrence: None)
  Receive Date: 20080402
  Receipt Date: 20080327
  Transmission Date: 20081010
  Serious: Yes (Other)
  Sender: FDA-Public Use
  Company Number: GB-MERCK-0803GBR00094

PATIENT
  Age: 67 Day
  Sex: Female
  Weight: 1 kg

DRUGS (14)
  1. DECADRON [Suspect]
     Route: 065
     Dates: start: 20080307, end: 20080311
  2. AMOXICILLIN AND CLAVULANATE POTASSIUM [Concomitant]
     Route: 065
  3. CAFFEINE [Concomitant]
     Route: 065
  4. CHLOROTHIAZIDE [Concomitant]
     Route: 065
  5. PORACTANT ALFA [Concomitant]
     Route: 065
  6. NYSTATIN [Concomitant]
     Route: 065
  7. POTASSIUM CHLORIDE [Concomitant]
     Route: 065
  8. SODIUM CHLORIDE [Concomitant]
     Route: 065
  9. SPIRONOLACTONE [Concomitant]
     Route: 065
  10. SODIUM FEREDETATE [Concomitant]
     Route: 065
  11. PIPERACILLIN SODIUM AND TAZOBACTAM SODIUM [Concomitant]
     Route: 065
  12. VANCOMYCIN [Concomitant]
     Route: 065
  13. PHYTONADIONE [Concomitant]
     Route: 065
  14. MILK [Concomitant]
     Route: 065

REACTIONS (4)
  - GLYCOSURIA [None]
  - HEART RATE INCREASED [None]
  - HYPERTENSION [None]
  - OXYGEN CONSUMPTION INCREASED [None]
